FAERS Safety Report 7376547-5 (Version None)
Quarter: 2011Q1

REPORT INFORMATION
  Report Type: 
  Country: None (occurrence: None)
  Receive Date: 20110325
  Receipt Date: 20110315
  Transmission Date: 20110831
  Serious: Yes (Hospitalization, Other)
  Sender: FDA-Public Use
  Company Number: US-ROCHE-756963

PATIENT
  Age: 53 Year
  Sex: Female
  Weight: 61.8 kg

DRUGS (5)
  1. EPIRUBICIN [Concomitant]
     Indication: GASTRIC CANCER
     Route: 042
     Dates: start: 20110113, end: 20110113
  2. DEXAMETHASONE [Concomitant]
     Route: 042
     Dates: start: 20110113, end: 20110113
  3. XELODA [Suspect]
     Indication: GASTRIC CANCER
     Dosage: TAKEN IN THE MORNING AND EVENING
     Route: 048
     Dates: start: 20110113, end: 20110127
  4. ONDANSETRON [Concomitant]
     Route: 042
     Dates: start: 20110113, end: 20110113
  5. OXALIPLATIN [Concomitant]
     Indication: GASTRIC CANCER
     Route: 042
     Dates: start: 20110113, end: 20110113

REACTIONS (4)
  - MENTAL STATUS CHANGES [None]
  - CONVULSION [None]
  - DEMYELINATION [None]
  - ASTHENIA [None]
